FAERS Safety Report 8765582 (Version 1)
Quarter: 2012Q4

REPORT INFORMATION
  Report Type: 
  Country: US (occurrence: US)
  Receive Date: 20120903
  Receipt Date: 20120903
  Transmission Date: 20130627
  Serious: Yes (Other)
  Sender: FDA-Public Use
  Company Number: PHEH2012US017065

PATIENT
  Sex: Female

DRUGS (2)
  1. DIOVAN [Suspect]
     Route: 048
  2. STEROIDS NOS [Concomitant]

REACTIONS (3)
  - Diabetes mellitus [Unknown]
  - Hepatic failure [Unknown]
  - Weight increased [Unknown]
